FAERS Safety Report 16676544 (Version 1)
Quarter: 2019Q3

REPORT INFORMATION
  Report Type: Spontaneous
  Country: US (occurrence: US)
  Receive Date: 20190807
  Receipt Date: 20190807
  Transmission Date: 20191004
  Serious: No
  Sender: FDA-Public Use
  Company Number: US-ALKEM LABORATORIES LIMITED-US-ALKEM-2018-07768

PATIENT
  Age: 53 Year
  Sex: Male

DRUGS (2)
  1. LAMOTRIGINE. [Suspect]
     Active Substance: LAMOTRIGINE
     Indication: BIPOLAR I DISORDER
     Dosage: UNK, WITHDRAWN
     Route: 065
  2. LAMOTRIGINE. [Suspect]
     Active Substance: LAMOTRIGINE
     Dosage: UNK, RE-CHALLENGE WAS INITIATED AT 5MG DAILY INCREASED BY 5MG EVERY WEEK UNTIL A DOSE OF 25MG/D
     Route: 065

REACTIONS (2)
  - Fixed eruption [Unknown]
  - Rash erythematous [Recovered/Resolved]
